FAERS Safety Report 8232620-0 (Version None)
Quarter: 2012Q1

REPORT INFORMATION
  Report Type: 
  Country: None (occurrence: None)
  Receive Date: 20120323
  Receipt Date: 20120316
  Transmission Date: 20120608
  Serious: Yes (Other)
  Sender: FDA-Public Use
  Company Number: CHPA2012US001608

PATIENT
  Age: 24 Year
  Sex: Female

DRUGS (1)
  1. EXCEDRIN PM CAPLETS [Suspect]
     Indication: INSOMNIA
     Dosage: 2 DF, QHS
     Route: 048
     Dates: start: 20100801

REACTIONS (2)
  - DYSPNOEA [None]
  - INCORRECT DRUG ADMINISTRATION DURATION [None]
